FAERS Safety Report 25943426 (Version 1)
Quarter: 2025Q4

REPORT INFORMATION
  Report Type: Spontaneous
  Country: US (occurrence: None)
  Receive Date: 20251019
  Receipt Date: 20251019
  Transmission Date: 20260119
  Serious: No
  Sender: FDA-CTU
  Company Number: None

PATIENT
  Age: 43 Year
  Sex: Male

DRUGS (2)
  1. RINVOQ [Suspect]
     Active Substance: UPADACITINIB
     Indication: Crohn^s disease
     Dates: start: 20241221, end: 20250706
  2. CREATINE [Suspect]
     Active Substance: CREATINE
     Indication: Routine health maintenance
     Dates: start: 20240901, end: 20250730

REACTIONS (6)
  - Aspartate aminotransferase increased [None]
  - Therapy interrupted [None]
  - Hepatitis [None]
  - Hepatic necrosis [None]
  - Increased liver stiffness [None]
  - Hepatic steatosis [None]
